FAERS Safety Report 11778360 (Version 4)
Quarter: 2016Q2

REPORT INFORMATION
  Report Type: Spontaneous
  Country: US (occurrence: US)
  Receive Date: 20151125
  Receipt Date: 20160411
  Transmission Date: 20160815
  Serious: Yes (Other)
  Sender: FDA-Public Use
  Company Number: US-009507513-1511USA007902

PATIENT
  Age: 20 Year
  Sex: Female
  Weight: 49.89 kg

DRUGS (2)
  1. IMPLANON [Suspect]
     Active Substance: ETONOGESTREL
     Indication: CONTRACEPTION
     Dosage: 1 IMPLANT/ 3YEARS (IN LEFT  ARM)
     Route: 059
     Dates: start: 20121106
  2. IMPLANON [Suspect]
     Active Substance: ETONOGESTREL
     Indication: MENSTRUAL CYCLE MANAGEMENT

REACTIONS (6)
  - Intestinal resection [Unknown]
  - Implant site pain [Unknown]
  - Weight decreased [Unknown]
  - Hypomenorrhoea [Unknown]
  - Incorrect drug administration duration [Unknown]
  - Menstruation irregular [Unknown]

NARRATIVE: CASE EVENT DATE: 201505
